FAERS Safety Report 24163741 (Version 1)
Quarter: 2024Q3

REPORT INFORMATION
  Report Type: Spontaneous
  Country: US (occurrence: None)
  Receive Date: 20240801
  Receipt Date: 20240801
  Transmission Date: 20241017
  Serious: Yes (Hospitalization, Other)
  Sender: ASTRAZENECA
  Company Number: 2024A171539

PATIENT
  Sex: Male
  Weight: 78.9 kg

DRUGS (2)
  1. CRESTOR [Interacting]
     Active Substance: ROSUVASTATIN CALCIUM
     Indication: Cardiac failure acute
     Route: 048
     Dates: start: 20240522
  2. VYNDAMAX [Interacting]
     Active Substance: TAFAMIDIS

REACTIONS (6)
  - Influenza [Unknown]
  - Cardiac amyloidosis [Unknown]
  - Drug interaction [Unknown]
  - Troponin increased [Unknown]
  - Ejection fraction decreased [Unknown]
  - Ventricular hypertrophy [Unknown]
